FAERS Safety Report 8463386-7 (Version None)
Quarter: 2012Q2

REPORT INFORMATION
  Report Type: 
  Country: None (occurrence: None)
  Receive Date: 20120625
  Receipt Date: 20120615
  Transmission Date: 20120825
  Serious: Yes (Other)
  Sender: FDA-Public Use
  Company Number: US-ASTRAZENECA-2012SE31904

PATIENT
  Age: 16 Year
  Sex: Male
  Weight: 90.7 kg

DRUGS (11)
  1. SEROQUEL XR [Suspect]
     Route: 048
  2. SEROQUEL XR [Suspect]
     Route: 048
  3. ABILIFY [Concomitant]
     Indication: AGITATION
     Route: 048
     Dates: start: 20060622, end: 20120321
  4. SEROQUEL XR [Suspect]
     Indication: AGITATION
     Route: 048
     Dates: start: 20120309
  5. SEROQUEL XR [Suspect]
     Route: 048
  6. SEROQUEL XR [Suspect]
     Route: 048
  7. SEROQUEL XR [Suspect]
     Route: 048
  8. SEROQUEL XR [Suspect]
     Indication: DEPRESSION
     Route: 048
     Dates: start: 20120309
  9. ABILIFY [Concomitant]
     Indication: AGGRESSION
     Route: 048
     Dates: start: 20060622, end: 20120321
  10. SEROQUEL XR [Suspect]
     Indication: BIPOLAR DISORDER
     Route: 048
     Dates: start: 20120309
  11. SEROQUEL XR [Suspect]
     Route: 048

REACTIONS (3)
  - MOVEMENT DISORDER [None]
  - DYSTONIA [None]
  - OFF LABEL USE [None]
